FAERS Safety Report 9509108 (Version 2)
Quarter: 2013Q3

REPORT INFORMATION
  Report Type: Spontaneous
  Country: US (occurrence: US)
  Receive Date: 20130909
  Receipt Date: 20130909
  Transmission Date: 20140515
  Serious: No
  Sender: FDA-Public Use
  Company Number: US-BRISTOL-MYERS SQUIBB COMPANY-19033828

PATIENT
  Age: 14 Year
  Sex: Male

DRUGS (2)
  1. ABILIFY [Suspect]
     Indication: AGITATION
  2. ABILIFY [Suspect]
     Indication: ASPERGER^S DISORDER

REACTIONS (1)
  - Blood triglycerides increased [Unknown]
